FAERS Safety Report 11923600 (Version 3)
Quarter: 2016Q4

REPORT INFORMATION
  Report Type: Spontaneous
  Country: US (occurrence: US)
  Receive Date: 20160118
  Receipt Date: 20161021
  Transmission Date: 20170206
  Serious: No
  Sender: FDA-Public Use
  Company Number: US-ASTRAZENECA-2016SE01798

PATIENT
  Sex: Female
  Weight: 63.5 kg

DRUGS (8)
  1. BYDUREON [Suspect]
     Active Substance: EXENATIDE
     Indication: TYPE 2 DIABETES MELLITUS
     Route: 058
  2. METFORMIN [Concomitant]
     Active Substance: METFORMIN HYDROCHLORIDE
     Dosage: 1000MG, BID
     Route: 048
  3. BYETTA [Suspect]
     Active Substance: EXENATIDE
     Dosage: TWICE DAILY
     Route: 065
  4. TIMOLOL. [Concomitant]
     Active Substance: TIMOLOL
     Indication: EYE DISORDER
  5. LISINOPRIL. [Suspect]
     Active Substance: LISINOPRIL
     Route: 048
  6. GLIPIRIDE [Concomitant]
     Active Substance: GLIMEPIRIDE
     Dosage: 5 MG, DAILY
     Route: 048
  7. LOVAZA [Concomitant]
     Active Substance: OMEGA-3-ACID ETHYL ESTERS
     Route: 048
  8. ATORVASTATIN [Concomitant]
     Active Substance: ATORVASTATIN
     Route: 048

REACTIONS (5)
  - Device defective [Unknown]
  - Maculopathy [Unknown]
  - Eye oedema [Unknown]
  - Injection site pain [Unknown]
  - Injection site nodule [Unknown]
